FAERS Safety Report 14066293 (Version 1)
Quarter: 2017Q4

REPORT INFORMATION
  Report Type: Report from Study
  Country: CA (occurrence: CA)
  Receive Date: 20171009
  Receipt Date: 20171009
  Transmission Date: 20180321
  Serious: Yes (Other)
  Sender: FDA-Public Use
  Company Number: CA-JNJFOC-20171004816

PATIENT
  Age: 65 Year
  Sex: Male

DRUGS (2)
  1. REMICADE [Suspect]
     Active Substance: INFLIXIMAB
     Indication: CROHN^S DISEASE
     Route: 042
     Dates: start: 20171004
  2. REMICADE [Suspect]
     Active Substance: INFLIXIMAB
     Indication: CROHN^S DISEASE
     Dosage: STRENGTH = 500 MG
     Route: 042
     Dates: start: 201612

REACTIONS (3)
  - Atrial fibrillation [Recovered/Resolved]
  - Hypertension [Not Recovered/Not Resolved]
  - Blood magnesium decreased [Unknown]

NARRATIVE: CASE EVENT DATE: 20170823
